FAERS Safety Report 6247439-X (Version None)
Quarter: 2009Q2

REPORT INFORMATION
  Report Type: 
  Country: None (occurrence: None)
  Receive Date: 20090626
  Receipt Date: 20090615
  Transmission Date: 20091009
  Serious: Yes (Hospitalization)
  Sender: FDA-Public Use
  Company Number: NL-PFIZER INC-2009192124

PATIENT
  Age: 66 Year

DRUGS (8)
  1. *ERLOTINIB [Suspect]
     Indication: NON-SMALL CELL LUNG CANCER
     Dosage: 150 MG, DAILY
     Route: 048
     Dates: start: 20090128
  2. BLINDED *NO SUBJECT DRUG [Suspect]
     Indication: NON-SMALL CELL LUNG CANCER
     Dosage: 37.5 MG, DAILY
     Route: 048
     Dates: start: 20090128
  3. BLINDED *PLACEBO [Suspect]
     Indication: NON-SMALL CELL LUNG CANCER
     Dosage: 37.5 MG, DAILY
     Route: 048
     Dates: start: 20090128
  4. BLINDED SUNITINIB MALATE [Suspect]
     Indication: NON-SMALL CELL LUNG CANCER
     Dosage: 37.5 MG, DAILY
     Route: 048
     Dates: start: 20090128
  5. LOPERAMIDE [Concomitant]
     Indication: DIARRHOEA
     Dosage: UNK
     Dates: start: 20090212
  6. AMOXICILLIN [Concomitant]
     Indication: PHARYNGITIS
     Dosage: UNK
     Dates: start: 20090129, end: 20090204
  7. DOXYCYCLINE HYCLATE [Concomitant]
     Indication: PHARYNGITIS
     Dosage: UNK
     Dates: start: 20090213, end: 20090306
  8. HYDROCORTISONE [Concomitant]
     Indication: SKIN EXFOLIATION
     Dosage: UNK
     Dates: start: 20090213, end: 20090423

REACTIONS (4)
  - ANOREXIA [None]
  - DIARRHOEA [None]
  - NAUSEA [None]
  - PLEURAL EFFUSION [None]
